FAERS Safety Report 24791801 (Version 1)
Quarter: 2024Q4

REPORT INFORMATION
  Report Type: Spontaneous
  Country: US (occurrence: US)
  Receive Date: 20241231
  Receipt Date: 20241231
  Transmission Date: 20250115
  Serious: No
  Sender: ABBVIE
  Company Number: US-ABBVIE-6066634

PATIENT
  Sex: Female

DRUGS (1)
  1. LUMIGAN [Suspect]
     Active Substance: BIMATOPROST
     Indication: Glaucoma
     Dosage: STRENGTH:  0.3MG/ML
     Route: 047

REACTIONS (6)
  - Insomnia [Unknown]
  - Ocular hyperaemia [Unknown]
  - Eye irritation [Unknown]
  - Drug ineffective [Unknown]
  - Eye pruritus [Unknown]
  - Eye pain [Unknown]
